FAERS Safety Report 11922874 (Version 1)
Quarter: 2016Q1

REPORT INFORMATION
  Report Type: Other
  Country: US (occurrence: US)
  Receive Date: 20160116
  Receipt Date: 20160116
  Transmission Date: 20160526
  Serious: No
  Sender: FDA-Public Use
  Company Number: US-DEP_08000_2015

PATIENT
  Age: 61 Year
  Sex: Female
  Weight: 58.6 kg

DRUGS (3)
  1. NUCYNTA [Suspect]
     Active Substance: TAPENTADOL HYDROCHLORIDE
     Indication: ARTHRALGIA
     Dosage: 75 MG, 4/DAY
     Route: 048
     Dates: start: 201408
  2. PROZAC [Concomitant]
     Active Substance: FLUOXETINE HYDROCHLORIDE
     Indication: DEPRESSION
     Dosage: 40 MG, UNK
  3. ZOLAMIDE [Concomitant]
     Active Substance: ACETAZOLAMIDE
     Indication: ARTHRALGIA
     Dosage: DF

REACTIONS (6)
  - Depression [Unknown]
  - Circumstance or information capable of leading to medication error [Unknown]
  - Drug ineffective [Not Recovered/Not Resolved]
  - Back disorder [Unknown]
  - Nausea [Unknown]
  - Vomiting [Unknown]

NARRATIVE: CASE EVENT DATE: 201407
